FAERS Safety Report 9256095 (Version 1)
Quarter: 2013Q2

REPORT INFORMATION
  Report Type: Spontaneous
  Country: US (occurrence: US)
  Receive Date: 20130425
  Receipt Date: 20130425
  Transmission Date: 20140414
  Serious: No
  Sender: FDA-Public Use
  Company Number: US-009507513-1304USA014175

PATIENT
  Sex: Female

DRUGS (3)
  1. SAPHRIS [Suspect]
     Indication: BIPOLAR DISORDER
     Route: 060
  2. LITHIUM [Concomitant]
  3. WELLBUTRIN [Concomitant]

REACTIONS (2)
  - Extrapyramidal disorder [Recovering/Resolving]
  - Tremor [Recovering/Resolving]
